FAERS Safety Report 5733816-X (Version None)
Quarter: 2008Q2

REPORT INFORMATION
  Report Type: 
  Country: None (occurrence: None)
  Receive Date: 20080509
  Receipt Date: 20080429
  Transmission Date: 20081010
  Serious: Yes (Other)
  Sender: FDA-Public Use
  Company Number: US-ELI_LILLY_AND_COMPANY-US200804007075

PATIENT
  Weight: 2.331 kg

DRUGS (3)
  1. HUMALOG [Suspect]
  2. HUMULIN R [Suspect]
     Dates: start: 20070620, end: 20070815
  3. HUMULIN N [Suspect]
     Dosage: UNK, UNK
     Dates: start: 20070613, end: 20070805

REACTIONS (4)
  - BLOOD GLUCOSE DECREASED [None]
  - DRUG EXPOSURE DURING PREGNANCY [None]
  - DRUG EXPOSURE VIA BREAST MILK [None]
  - FOETAL HEART RATE ABNORMAL [None]
